FAERS Safety Report 5834541-7 (Version None)
Quarter: 2008Q3

REPORT INFORMATION
  Report Type: 
  Country: None (occurrence: None)
  Receive Date: 20080805
  Receipt Date: 20080724
  Transmission Date: 20090109
  Serious: Yes (Other)
  Sender: FDA-Public Use
  Company Number: CH-PFIZER INC-2008063068

PATIENT
  Sex: Female

DRUGS (3)
  1. CHANTIX [Suspect]
  2. PREDNISON [Concomitant]
  3. DEROXAT [Concomitant]

REACTIONS (1)
  - DEPRESSION [None]
